FAERS Safety Report 9855524 (Version 1)
Quarter: 2013Q4

REPORT INFORMATION
  Report Type: Spontaneous
  Country: US (occurrence: None)
  Receive Date: 20131226
  Receipt Date: 20131226
  Transmission Date: 20140711
  Serious: Yes (Other)
  Sender: FDA-Public Use
  Company Number: PHEH2012US023849

PATIENT
  Age: 56 Year
  Sex: Female
  Weight: 108.4 kg

DRUGS (6)
  1. SANDOSTATIN LAR DEPOT (OCTREOTIDE WITH POLY(D L-LACTIDE-CO-GLYCOLIDE)) UNKNOWN [Suspect]
     Indication: CARCINOID TUMOUR OF THE STOMACH
     Dosage: 20 MG / 4 WEEKS, INTRAMUSCULAR
     Dates: start: 20120110, end: 20120210
  2. FERREX (POLYSACCHARIDE-IRON COMPLEX) [Concomitant]
  3. LEVOTHYROXINE (LEVOTHYROXINE) [Concomitant]
  4. VIT C LONG (ASCORBIC ACID, CALCIUM [Concomitant]
  5. VIT D (ERGOCALCIFEROL) [Concomitant]
  6. CALCIUM CARBONATE (CALCIUM CARBONATE) (CALCIUM CARBONATE) [Concomitant]

REACTIONS (1)
  - Cholelithiasis [None]
